FAERS Safety Report 18996921 (Version 3)
Quarter: 2022Q2

REPORT INFORMATION
  Report Type: Other
  Country: US (occurrence: None)
  Receive Date: 20210311
  Receipt Date: 20220418
  Transmission Date: 20220721
  Serious: Yes (Hospitalization)
  Sender: FDA-Public Use
  Company Number: US-ROCHE-2787397

PATIENT
  Age: 74 Year
  Sex: Female
  Weight: 47.670 kg

DRUGS (7)
  1. ESBRIET [Suspect]
     Active Substance: PIRFENIDONE
     Indication: Idiopathic pulmonary fibrosis
     Dosage: TAKE 3 CAPSULE(S) BY MOUTH 3 TIMES A DAY
     Route: 048
     Dates: start: 201509
  2. ESBRIET [Suspect]
     Active Substance: PIRFENIDONE
     Dosage: 1 TABLET THREE TIMES DAILY.
     Route: 048
  3. BLOOD THINNER (UNK INGREDIENTS) [Concomitant]
  4. ASPIRIN [Concomitant]
     Active Substance: ASPIRIN
  5. ANTIBIOTICS (UNK INGREDIENTS) [Concomitant]
  6. NEBULIZER (UNK INGREDIENTS) [Concomitant]
     Dosage: USE MORNING AND AFTERNOON
  7. INHALER (UNK INGREDIENTS) [Concomitant]

REACTIONS (1)
  - Myocardial infarction [Not Recovered/Not Resolved]

NARRATIVE: CASE EVENT DATE: 20210124
